FAERS Safety Report 5929887-8 (Version None)
Quarter: 2008Q3

REPORT INFORMATION
  Report Type: 
  Country: None (occurrence: None)
  Receive Date: 20080930
  Receipt Date: 20070821
  Transmission Date: 20090109
  Serious: Yes (Other)
  Sender: FDA-Public Use
  Company Number: 160423USA

PATIENT
  Age: 63 Year
  Sex: Female

DRUGS (6)
  1. DOXYCYCLINE [Suspect]
     Dosage: (100 MG),ORAL
     Route: 048
     Dates: start: 20070814, end: 20070821
  2. FEXOFENADINE HYDROCHLORIDE [Concomitant]
  3. CIRRUS [Concomitant]
  4. RABEPRAZOLE SODIUM [Concomitant]
  5. TETRYZOLINE HYDROCHLORIDE [Concomitant]
  6. WARFARIN SODIUM [Concomitant]

REACTIONS (7)
  - BURNING SENSATION [None]
  - DYSPNOEA [None]
  - ERYTHEMA [None]
  - PRURITUS GENERALISED [None]
  - RASH [None]
  - SWELLING FACE [None]
  - THROAT IRRITATION [None]
